FAERS Safety Report 6535513-X (Version None)
Quarter: 2010Q1

REPORT INFORMATION
  Report Type: 
  Country: None (occurrence: None)
  Receive Date: 20100111
  Receipt Date: 20100111
  Transmission Date: 20100710
  Serious: Yes (Other)
  Sender: FDA-Public Use
  Company Number: None

PATIENT
  Age: 67 Year
  Sex: Female
  Weight: 114.76 kg

DRUGS (1)
  1. EMBEDA [Suspect]
     Indication: PAIN IN EXTREMITY
     Dosage: 30 - 1.2MG TWICE A DAY BY MOUTH
     Route: 048
     Dates: start: 20091208, end: 20091211

REACTIONS (4)
  - FATIGUE [None]
  - HEADACHE [None]
  - PRURITUS GENERALISED [None]
  - SPEECH DISORDER [None]
